FAERS Safety Report 7103617-9 (Version None)
Quarter: 2010Q4

REPORT INFORMATION
  Report Type: 
  Country: None (occurrence: None)
  Receive Date: 20101115
  Receipt Date: 20090929
  Transmission Date: 20110411
  Serious: No
  Sender: FDA-Public Use
  Company Number: US-KINGPHARMUSA00001-K200901204

PATIENT
  Sex: Female

DRUGS (2)
  1. LEVOXYL [Suspect]
     Dosage: 88 MCG, UNK
  2. LEVOXYL [Suspect]
     Dosage: UNK MCG, UNK

REACTIONS (5)
  - ALLERGY TO CHEMICALS [None]
  - COELIAC DISEASE [None]
  - FOOD ALLERGY [None]
  - THROAT TIGHTNESS [None]
  - WHEEZING [None]
